FAERS Safety Report 16305316 (Version 1)
Quarter: 2019Q2

REPORT INFORMATION
  Report Type: Spontaneous
  Country: US (occurrence: US)
  Receive Date: 20190408
  Receipt Date: 20190408
  Transmission Date: 20190711
  Serious: No
  Sender: FDA-Public Use
  Company Number: None

PATIENT
  Age: 41 Year
  Sex: Female
  Weight: 98 kg

DRUGS (1)
  1. RIVAROXABAN [Suspect]
     Active Substance: RIVAROXABAN

REACTIONS (5)
  - International normalised ratio decreased [None]
  - Vaginal haemorrhage [None]
  - Activated partial thromboplastin time shortened [None]
  - Haematocrit decreased [None]
  - Haemoglobin decreased [None]
